FAERS Safety Report 21089528 (Version 2)
Quarter: 2022Q3

REPORT INFORMATION
  Report Type: Spontaneous
  Country: US (occurrence: US)
  Receive Date: 20220715
  Receipt Date: 20220824
  Transmission Date: 20221027
  Serious: No
  Sender: FDA-Public Use
  Company Number: US-BRISTOL-MYERS SQUIBB COMPANY-2022-074628

PATIENT
  Age: 86 Year
  Sex: Male
  Weight: 96.16 kg

DRUGS (2)
  1. REVLIMID [Suspect]
     Active Substance: LENALIDOMIDE
     Indication: Plasma cell myeloma
     Dosage: 21D ON AND 7DOFF
     Route: 048
     Dates: start: 20220614, end: 20220805
  2. REVLIMID [Suspect]
     Active Substance: LENALIDOMIDE
     Dosage: DAILY FOR 21DAYS
     Route: 048
     Dates: start: 20220614

REACTIONS (3)
  - Platelet count decreased [Unknown]
  - Pruritus [Recovered/Resolved]
  - Fatigue [Unknown]

NARRATIVE: CASE EVENT DATE: 20220805
